FAERS Safety Report 7823749-7 (Version None)
Quarter: 2011Q4

REPORT INFORMATION
  Report Type: 
  Country: None (occurrence: None)
  Receive Date: 20111019
  Receipt Date: 20111014
  Transmission Date: 20120403
  Serious: No
  Sender: FDA-Public Use
  Company Number: US-PFIZER INC-2011246563

PATIENT
  Sex: Female

DRUGS (1)
  1. EXEMESTANE [Suspect]
     Dosage: UNK

REACTIONS (1)
  - TUMOUR MARKER INCREASED [None]
